FAERS Safety Report 12237679 (Version 1)
Quarter: 2016Q2

REPORT INFORMATION
  Report Type: Spontaneous
  Country: None (occurrence: None)
  Receive Date: 20160404
  Receipt Date: 20160404
  Transmission Date: 20160815
  Serious: Yes (Other)
  Sender: FDA-Public Use
  Company Number: None

PATIENT
  Age: 25 Year
  Sex: Female
  Weight: 52.62 kg

DRUGS (2)
  1. INSULIN [Concomitant]
     Active Substance: INSULIN NOS
  2. AMNESTEEM [Suspect]
     Active Substance: ISOTRETINOIN
     Indication: ACNE
     Route: 048
     Dates: start: 20160326, end: 20160331

REACTIONS (9)
  - Dry skin [None]
  - Anger [None]
  - Nausea [None]
  - Drug ineffective [None]
  - Suicidal ideation [None]
  - Mood swings [None]
  - Lip dry [None]
  - Weight decreased [None]
  - Paranoia [None]

NARRATIVE: CASE EVENT DATE: 20160329
